FAERS Safety Report 25454639 (Version 2)
Quarter: 2025Q3

REPORT INFORMATION
  Report Type: Report from Study
  Country: JP (occurrence: JP)
  Receive Date: 20250619
  Receipt Date: 20250716
  Transmission Date: 20251020
  Serious: Yes (Hospitalization)
  Sender: RADIUS PHARM
  Company Number: JP-RADIUS HEALTH INC.-JP-RADIUS-25049976

PATIENT
  Age: 80 Year
  Sex: Female

DRUGS (4)
  1. ABALOPARATIDE [Suspect]
     Active Substance: ABALOPARATIDE
     Indication: Osteoporosis prophylaxis
     Dosage: 80 MICROGRAM, QD
     Route: 058
     Dates: start: 20241217
  2. LANSOPRAZOLE [Concomitant]
     Active Substance: LANSOPRAZOLE
     Indication: Symptomatic treatment
     Dosage: 15 MILLIGRAM, QD
     Route: 048
     Dates: start: 2024
  3. LOXOPROFEN SODIUM [Concomitant]
     Active Substance: LOXOPROFEN SODIUM
     Indication: Antiinflammatory therapy
     Dosage: 180 MILLIGRAM, QD
     Route: 048
     Dates: start: 2024
  4. LOXOPROFEN SODIUM [Concomitant]
     Active Substance: LOXOPROFEN SODIUM
     Indication: Analgesic therapy

REACTIONS (4)
  - Shoulder fracture [Unknown]
  - Malaise [Recovering/Resolving]
  - Palpitations [Recovering/Resolving]
  - Off label use [Unknown]

NARRATIVE: CASE EVENT DATE: 20250102
